FAERS Safety Report 11890188 (Version 1)
Quarter: 2016Q1

REPORT INFORMATION
  Report Type: Spontaneous
  Country: US (occurrence: US)
  Receive Date: 20160105
  Receipt Date: 20160105
  Transmission Date: 20160526
  Serious: No
  Sender: FDA-Public Use
  Company Number: US-CANGENE-145679

PATIENT
  Age: 7 Year
  Sex: Female
  Weight: 21.7 kg

DRUGS (2)
  1. VARIZIG [Suspect]
     Active Substance: HUMAN VARICELLA-ZOSTER IMMUNE GLOBULIN
     Indication: ANTIVIRAL PROPHYLAXIS
  2. VARIZIG [Suspect]
     Active Substance: HUMAN VARICELLA-ZOSTER IMMUNE GLOBULIN
     Indication: ANTIVIRAL PROPHYLAXIS

REACTIONS (1)
  - Intercepted drug administration error [Recovered/Resolved]

NARRATIVE: CASE EVENT DATE: 20151222
